FAERS Safety Report 14232367 (Version 1)
Quarter: 2017Q4

REPORT INFORMATION
  Report Type: Spontaneous
  Country: BR (occurrence: BR)
  Receive Date: 20171128
  Receipt Date: 20171128
  Transmission Date: 20180321
  Serious: Yes (Other)
  Sender: FDA-Public Use
  Company Number: PHHY2017BR172351

PATIENT
  Age: 66 Year
  Sex: Female
  Weight: 57 kg

DRUGS (1)
  1. ROSUVASTATIN. [Suspect]
     Active Substance: ROSUVASTATIN
     Indication: BLOOD CHOLESTEROL INCREASED
     Dosage: 1 DF, QD
     Route: 048
     Dates: start: 2007

REACTIONS (7)
  - Fibromyalgia [Unknown]
  - Systemic scleroderma [Unknown]
  - Raynaud^s phenomenon [Unknown]
  - Systemic lupus erythematosus [Unknown]
  - Sjogren^s syndrome [Recovered/Resolved]
  - Vasculitis [Unknown]
  - Hypertension [Unknown]

NARRATIVE: CASE EVENT DATE: 20170930
